FAERS Safety Report 13163488 (Version 19)
Quarter: 2018Q3

REPORT INFORMATION
  Report Type: Report from Study
  Country: GB (occurrence: GB)
  Receive Date: 20170130
  Receipt Date: 20180724
  Transmission Date: 20181010
  Serious: Yes (Hospitalization)
  Sender: FDA-Public Use
  Company Number: GB-B.I. PHARMACEUTICALS,INC./RIDGEFIELD-2016-BI-081538

PATIENT
  Age: 66 Year
  Sex: Female
  Weight: 59.8 kg

DRUGS (12)
  1. FOLIC ACID. [Concomitant]
     Active Substance: FOLIC ACID
     Indication: PROPHYLACTIC CHEMOTHERAPY
     Route: 048
     Dates: start: 20161006
  2. BIBF 1120 [Suspect]
     Active Substance: NINTEDANIB
     Indication: PLEURAL MESOTHELIOMA MALIGNANT
     Route: 048
     Dates: start: 20161130
  3. GAVISCON [Concomitant]
     Active Substance: ALUMINUM HYDROXIDE\MAGNESIUM CARBONATE
     Indication: HIATUS HERNIA
     Route: 048
     Dates: start: 2014
  4. BUTRANS [Concomitant]
     Active Substance: BUPRENORPHINE
     Indication: ARTHRITIS
     Dosage: DAILY DOSE: 15MCG PER HOUR
     Route: 062
     Dates: start: 2014
  5. INDOMETHACIN. [Concomitant]
     Active Substance: INDOMETHACIN
     Route: 048
     Dates: start: 20170216
  6. GAVISCON [Concomitant]
     Active Substance: ALUMINUM HYDROXIDE\MAGNESIUM CARBONATE
     Indication: GASTROOESOPHAGEAL REFLUX DISEASE
  7. THYROXINE [Concomitant]
     Active Substance: LEVOTHYROXINE
     Indication: HYPOTHYROIDISM
     Route: 048
     Dates: start: 2014
  8. FUROSEMIDE. [Concomitant]
     Active Substance: FUROSEMIDE
     Indication: JOINT SWELLING
     Route: 048
     Dates: start: 1980
  9. BUPRENORPHINE PATCH [Concomitant]
     Active Substance: BUPRENORPHINE
     Indication: PRODUCT USED FOR UNKNOWN INDICATION
     Dosage: 15MCG 1/HR
     Route: 062
  10. COCODAMOL [Concomitant]
     Active Substance: ACETAMINOPHEN\CODEINE PHOSPHATE
     Indication: ARTHRITIS
     Route: 048
     Dates: start: 2006
  11. OMEPRAZOLE. [Concomitant]
     Active Substance: OMEPRAZOLE
     Indication: GASTROOESOPHAGEAL REFLUX DISEASE
     Route: 048
     Dates: start: 2011
  12. INDOMETHACIN. [Concomitant]
     Active Substance: INDOMETHACIN
     Indication: GOUT
     Route: 048
     Dates: start: 2006, end: 201610

REACTIONS (3)
  - Dehydration [Recovered/Resolved]
  - Neutropenic sepsis [Recovered/Resolved]
  - Endocarditis [Recovered/Resolved]

NARRATIVE: CASE EVENT DATE: 20161203
